FAERS Safety Report 5822428-5 (Version None)
Quarter: 2008Q3

REPORT INFORMATION
  Report Type: 
  Country: None (occurrence: None)
  Receive Date: 20080725
  Receipt Date: 20080325
  Transmission Date: 20090109
  Serious: No
  Sender: FDA-Public Use
  Company Number: US-AMGEN-KDL271381

PATIENT
  Age: 79 Year
  Sex: Male

DRUGS (13)
  1. PROCRIT [Suspect]
     Indication: RENAL FAILURE CHRONIC
     Dates: start: 20080229
  2. DILTIAZEM HYDROCHLORIDE [Concomitant]
  3. WARFARIN SODIUM [Concomitant]
  4. AZMACORT [Concomitant]
  5. VIOKASE [Concomitant]
  6. CHOLESTYRAMINE [Concomitant]
  7. SINGULAIR [Concomitant]
  8. CALCIUM WITH VITAMIN D [Concomitant]
  9. ISOSORBIDE MONONITRATE [Concomitant]
  10. CRESTOR [Concomitant]
  11. IRON [Concomitant]
  12. CILOSTAZOL [Concomitant]
  13. MULTIVITAMIN [Concomitant]

REACTIONS (9)
  - BLOOD GLUCOSE INCREASED [None]
  - DRY SKIN [None]
  - INSOMNIA [None]
  - JOINT SWELLING [None]
  - MUSCLE SWELLING [None]
  - MUSCLE TIGHTNESS [None]
  - OEDEMA PERIPHERAL [None]
  - PAIN IN EXTREMITY [None]
  - SKIN CHAPPED [None]
